FAERS Safety Report 4436451-9 (Version None)
Quarter: 2004Q3

REPORT INFORMATION
  Report Type: 
  Country: None (occurrence: None)
  Receive Date: 20040830
  Receipt Date: 20040430
  Transmission Date: 20050211
  Serious: No
  Sender: FDA-Public Use
  Company Number: US-BRISTOL-MYERS SQUIBB COMPANY-12588687

PATIENT
  Age: 52 Year
  Sex: Male

DRUGS (1)
  1. ABILIFY [Suspect]
     Indication: PSYCHOTIC DISORDER
     Dosage: INITIATED 10 MG/DAY, DISCONTINUED DUE TO RASH, REINTRODUCED AT LOWER DOSE, THEN INC TO 10 MG/DAY.
     Route: 048

REACTIONS (1)
  - RASH [None]
